FAERS Safety Report 7569173-6 (Version None)
Quarter: 2011Q2

REPORT INFORMATION
  Report Type: 
  Country: None (occurrence: None)
  Receive Date: 20110623
  Receipt Date: 20110609
  Transmission Date: 20111010
  Serious: Yes (Hospitalization, Other)
  Sender: FDA-Public Use
  Company Number: PHHY2011NL47152

PATIENT
  Sex: Female

DRUGS (4)
  1. ZOMETA [Suspect]
     Indication: BREAST CANCER
     Dosage: 4 MG/5 ML 1X PER 28 DAYS
     Route: 042
     Dates: start: 20110502
  2. ENOXAPARIN SODIUM [Concomitant]
  3. FEMARA [Concomitant]
  4. ANALGESICS [Concomitant]

REACTIONS (3)
  - PNEUMONIA [None]
  - DYSPNOEA [None]
  - PERICARDIAL EFFUSION [None]
